FAERS Safety Report 12707616 (Version 3)
Quarter: 2016Q4

REPORT INFORMATION
  Report Type: Spontaneous
  Country: ZA (occurrence: ZA)
  Receive Date: 20160901
  Receipt Date: 20161005
  Transmission Date: 20170207
  Serious: Yes (Hospitalization, Other)
  Sender: FDA-Public Use
  Company Number: ZA-ASTELLAS-2016US033175

PATIENT
  Age: 84 Year
  Sex: Male

DRUGS (1)
  1. XTANDI [Suspect]
     Active Substance: ENZALUTAMIDE
     Indication: HORMONE-REFRACTORY PROSTATE CANCER
     Dosage: 4 CAPSULES (40 MG), ONCE DAILY
     Route: 048
     Dates: start: 20141115

REACTIONS (4)
  - Local swelling [Recovering/Resolving]
  - Postoperative wound infection [Recovering/Resolving]
  - Groin pain [Recovering/Resolving]
  - Urinary tract infection [Unknown]

NARRATIVE: CASE EVENT DATE: 201609
